FAERS Safety Report 25660297 (Version 1)
Quarter: 2025Q3

REPORT INFORMATION
  Report Type: Spontaneous
  Country: US (occurrence: None)
  Receive Date: 20250807
  Receipt Date: 20250807
  Transmission Date: 20251020
  Serious: No
  Sender: FDA-CTU
  Company Number: None

PATIENT
  Age: 36 Year
  Sex: Female

DRUGS (1)
  1. ZURZUVAE [Suspect]
     Active Substance: ZURANOLONE
     Indication: Perinatal depression
     Dosage: FREQUENCY : AT BEDTIME;?
     Route: 048

REACTIONS (7)
  - Pain in extremity [None]
  - Apraxia [None]
  - Paraesthesia [None]
  - Sensory disturbance [None]
  - Hypersomnia [None]
  - Depressed level of consciousness [None]
  - Fatigue [None]

NARRATIVE: CASE EVENT DATE: 20250717
